FAERS Safety Report 24177388 (Version 1)
Quarter: 2024Q3

REPORT INFORMATION
  Report Type: Spontaneous
  Country: CA (occurrence: CA)
  Receive Date: 20240806
  Receipt Date: 20240806
  Transmission Date: 20241017
  Serious: Yes (Death, Life-Threatening, Hospitalization, Disabling, Congenital Anomaly, Other)
  Sender: Haleon PLC
  Company Number: CA-HALEON-2190279

PATIENT
  Age: 43 Year
  Sex: Female
  Weight: 68 kg

DRUGS (173)
  1. DICLOFENAC POTASSIUM [Suspect]
     Active Substance: DICLOFENAC POTASSIUM
     Indication: Product used for unknown indication
     Route: 065
  2. PERIOGARD [Suspect]
     Active Substance: CHLORHEXIDINE GLUCONATE
     Indication: Product used for unknown indication
     Route: 002
  3. FOLIC ACID [Suspect]
     Active Substance: FOLIC ACID
     Indication: Rheumatoid arthritis
     Route: 058
  4. FOLIC ACID [Suspect]
     Active Substance: FOLIC ACID
     Route: 065
  5. FOLIC ACID [Suspect]
     Active Substance: FOLIC ACID
     Route: 065
  6. FOLIC ACID [Suspect]
     Active Substance: FOLIC ACID
     Route: 058
  7. FOLIC ACID [Suspect]
     Active Substance: FOLIC ACID
     Route: 058
  8. FOLIC ACID [Suspect]
     Active Substance: FOLIC ACID
     Route: 058
  9. FOLIC ACID [Suspect]
     Active Substance: FOLIC ACID
     Route: 065
  10. TRAMADOL HYDROCHLORIDE [Suspect]
     Active Substance: TRAMADOL HYDROCHLORIDE
     Indication: Product used for unknown indication
     Route: 065
  11. ACTEMRA [Suspect]
     Active Substance: TOCILIZUMAB
     Indication: Rheumatoid arthritis
     Route: 042
  12. ACTEMRA [Suspect]
     Active Substance: TOCILIZUMAB
     Route: 042
  13. ACTEMRA [Suspect]
     Active Substance: TOCILIZUMAB
     Route: 042
  14. ACTEMRA [Suspect]
     Active Substance: TOCILIZUMAB
     Route: 058
  15. ACTEMRA [Suspect]
     Active Substance: TOCILIZUMAB
     Route: 048
  16. ENBREL [Suspect]
     Active Substance: BENZYL ALCOHOL\ETANERCEPT
     Indication: Psoriatic arthropathy
     Route: 058
  17. ENBREL [Suspect]
     Active Substance: BENZYL ALCOHOL\ETANERCEPT
     Indication: Rheumatoid arthritis
     Route: 058
  18. KEVZARA [Suspect]
     Active Substance: SARILUMAB
     Indication: Rheumatoid arthritis
     Route: 065
  19. MYCOPHENOLATE MOFETIL [Suspect]
     Active Substance: MYCOPHENOLATE MOFETIL
     Indication: Product used for unknown indication
     Route: 065
  20. MYCOPHENOLATE MOFETIL [Suspect]
     Active Substance: MYCOPHENOLATE MOFETIL
     Route: 065
  21. MYCOPHENOLATE MOFETIL [Suspect]
     Active Substance: MYCOPHENOLATE MOFETIL
     Route: 065
  22. NEOMYCIN [Suspect]
     Active Substance: NEOMYCIN
     Indication: Product used for unknown indication
     Route: 065
  23. NEOMYCIN [Suspect]
     Active Substance: NEOMYCIN
     Route: 065
  24. TOPICORT [Suspect]
     Active Substance: DESOXIMETASONE
     Indication: Rheumatoid arthritis
     Route: 058
  25. SULFAMETHOXAZOLE AND TRIMETHOPRIM [Suspect]
     Active Substance: SULFAMETHOXAZOLE\TRIMETHOPRIM
     Indication: Product used for unknown indication
     Route: 065
  26. CORTISONE [Suspect]
     Active Substance: CORTISONE
     Indication: Rheumatoid arthritis
     Route: 061
  27. CORTISONE [Suspect]
     Active Substance: CORTISONE
     Route: 048
  28. CORTISONE [Suspect]
     Active Substance: CORTISONE
     Route: 058
  29. CORTISONE [Suspect]
     Active Substance: CORTISONE
     Route: 003
  30. FLUMETHASONE PIVALATE [Suspect]
     Active Substance: FLUMETHASONE PIVALATE
     Indication: Rheumatoid arthritis
     Route: 065
  31. FLUMETHASONE PIVALATE [Suspect]
     Active Substance: FLUMETHASONE PIVALATE
     Route: 058
  32. HYDROXYCHLOROQUINE [Suspect]
     Active Substance: HYDROXYCHLOROQUINE
     Indication: Rheumatoid arthritis
     Route: 066
  33. HYDROXYCHLOROQUINE [Suspect]
     Active Substance: HYDROXYCHLOROQUINE
     Route: 065
  34. HYDROXYCHLOROQUINE [Suspect]
     Active Substance: HYDROXYCHLOROQUINE
     Route: 048
  35. CHLORAPREP [Suspect]
     Active Substance: CHLORHEXIDINE GLUCONATE\ISOPROPYL ALCOHOL
     Indication: Product used for unknown indication
     Route: 048
  36. CHLORAPREP [Suspect]
     Active Substance: CHLORHEXIDINE GLUCONATE\ISOPROPYL ALCOHOL
     Route: 061
  37. GOLIMUMAB [Suspect]
     Active Substance: GOLIMUMAB
     Indication: Rheumatoid arthritis
     Route: 065
  38. PSEUDOEPHEDRINE HYDROCHLORIDE [Suspect]
     Active Substance: PSEUDOEPHEDRINE HYDROCHLORIDE
     Indication: Rheumatoid arthritis
     Route: 065
  39. PSEUDOEPHEDRINE HYDROCHLORIDE [Suspect]
     Active Substance: PSEUDOEPHEDRINE HYDROCHLORIDE
     Indication: Product used for unknown indication
     Route: 065
  40. LEFLUNOMIDE [Suspect]
     Active Substance: LEFLUNOMIDE
     Indication: Product used for unknown indication
     Route: 048
  41. LEFLUNOMIDE [Suspect]
     Active Substance: LEFLUNOMIDE
     Route: 048
  42. LEFLUNOMIDE [Suspect]
     Active Substance: LEFLUNOMIDE
     Route: 048
  43. ADALIMUMAB [Suspect]
     Active Substance: ADALIMUMAB
     Indication: Psoriatic arthropathy
     Route: 058
  44. ADALIMUMAB [Suspect]
     Active Substance: ADALIMUMAB
     Route: 048
  45. ADALIMUMAB [Suspect]
     Active Substance: ADALIMUMAB
     Route: 058
  46. ADALIMUMAB [Suspect]
     Active Substance: ADALIMUMAB
     Route: 058
  47. OXYCODONE [Suspect]
     Active Substance: OXYCODONE
     Indication: Product used for unknown indication
     Route: 065
  48. OXYCODONE [Suspect]
     Active Substance: OXYCODONE
     Route: 065
  49. HUMIRA [Suspect]
     Active Substance: ADALIMUMAB
     Indication: Rheumatoid arthritis
     Route: 065
  50. HUMIRA [Suspect]
     Active Substance: ADALIMUMAB
     Indication: Psoriatic arthropathy
     Route: 058
  51. DESOGESTRAL,ETHENYLESTRADIOL [Concomitant]
     Indication: Product used for unknown indication
     Route: 065
  52. TYLENOL WITH CODEINE [Concomitant]
     Active Substance: ACETAMINOPHEN\CODEINE PHOSPHATE
     Indication: Product used for unknown indication
     Route: 065
  53. VITAMIN D [Concomitant]
     Active Substance: VITAMIN D NOS
     Indication: Product used for unknown indication
     Route: 065
  54. CHOLECALCIFEROL [Concomitant]
     Active Substance: CHOLECALCIFEROL
     Indication: Product used for unknown indication
     Route: 065
  55. DICLOFENAC SODIUM [Suspect]
     Active Substance: DICLOFENAC\DICLOFENAC SODIUM
     Indication: Product used for unknown indication
     Route: 065
  56. ACETAMINOPHEN [Suspect]
     Active Substance: ACETAMINOPHEN
     Indication: Product used for unknown indication
     Route: 065
  57. ACETAMINOPHEN [Suspect]
     Active Substance: ACETAMINOPHEN
     Route: 065
  58. OTEZLA [Suspect]
     Active Substance: APREMILAST
     Indication: Product used for unknown indication
  59. OTEZLA [Suspect]
     Active Substance: APREMILAST
     Route: 048
  60. STELARA [Suspect]
     Active Substance: USTEKINUMAB
     Indication: Product used for unknown indication
     Route: 042
  61. STELARA [Suspect]
     Active Substance: USTEKINUMAB
     Indication: Psoriatic arthropathy
     Route: 058
  62. PREDNISONE [Suspect]
     Active Substance: PREDNISONE
     Indication: Condition aggravated
     Route: 048
  63. PREDNISONE [Suspect]
     Active Substance: PREDNISONE
     Indication: Psoriatic arthropathy
     Route: 042
  64. PREDNISONE [Suspect]
     Active Substance: PREDNISONE
     Indication: Rheumatoid arthritis
     Route: 048
  65. HYDROCORTISONE PROBUTATE [Suspect]
     Active Substance: HYDROCORTISONE PROBUTATE
     Indication: Product used for unknown indication
     Route: 065
  66. HYDROCORTISONE PROBUTATE [Suspect]
     Active Substance: HYDROCORTISONE PROBUTATE
     Route: 065
  67. CORTISONE ACETATE [Suspect]
     Active Substance: CORTISONE ACETATE
     Indication: Rheumatoid arthritis
     Route: 061
  68. HYDROXYCHLOROQUINE SULFATE [Suspect]
     Active Substance: HYDROXYCHLOROQUINE SULFATE
     Indication: Rheumatoid arthritis
     Route: 065
  69. METHOTREXATE [Suspect]
     Active Substance: METHOTREXATE
     Indication: Rheumatoid arthritis
     Route: 048
  70. METHOTREXATE [Suspect]
     Active Substance: METHOTREXATE
     Route: 048
  71. METHOTREXATE [Suspect]
     Active Substance: METHOTREXATE
     Route: 048
  72. METHOTREXATE [Suspect]
     Active Substance: METHOTREXATE
     Route: 013
  73. METHOTREXATE [Suspect]
     Active Substance: METHOTREXATE
     Route: 048
  74. METHOTREXATE [Suspect]
     Active Substance: METHOTREXATE
     Route: 058
  75. METHOTREXATE [Suspect]
     Active Substance: METHOTREXATE
  76. SULFASALAZINE [Suspect]
     Active Substance: SULFASALAZINE
     Indication: Rheumatoid arthritis
     Route: 065
  77. SULFASALAZINE [Suspect]
     Active Substance: SULFASALAZINE
     Indication: Product used for unknown indication
     Route: 048
  78. SULFASALAZINE [Suspect]
     Active Substance: SULFASALAZINE
     Route: 048
  79. SULFASALAZINE [Suspect]
     Active Substance: SULFASALAZINE
     Route: 065
  80. SULFASALAZINE [Suspect]
     Active Substance: SULFASALAZINE
     Route: 065
  81. RITUXIMAB [Suspect]
     Active Substance: RITUXIMAB
     Indication: Rheumatoid arthritis
     Route: 058
  82. RITUXIMAB [Suspect]
     Active Substance: RITUXIMAB
     Route: 042
  83. RITUXIMAB [Suspect]
     Active Substance: RITUXIMAB
     Route: 058
  84. RITUXIMAB [Suspect]
     Active Substance: RITUXIMAB
     Route: 042
  85. PHTHALYLSULFATHIAZOLE [Suspect]
     Active Substance: PHTHALYLSULFATHIAZOLE
     Indication: Rheumatoid arthritis
     Route: 065
  86. PHTHALYLSULFATHIAZOLE [Suspect]
     Active Substance: PHTHALYLSULFATHIAZOLE
     Route: 016
  87. PHTHALYLSULFATHIAZOLE [Suspect]
     Active Substance: PHTHALYLSULFATHIAZOLE
     Route: 048
  88. PHTHALYLSULFATHIAZOLE [Suspect]
     Active Substance: PHTHALYLSULFATHIAZOLE
     Route: 065
  89. PHTHALYLSULFATHIAZOLE [Suspect]
     Active Substance: PHTHALYLSULFATHIAZOLE
     Route: 042
  90. METHOTREXATE SODIUM [Suspect]
     Active Substance: METHOTREXATE SODIUM
     Indication: Rheumatoid arthritis
     Route: 058
  91. METHOTREXATE SODIUM [Suspect]
     Active Substance: METHOTREXATE SODIUM
     Route: 048
  92. METHOTREXATE SODIUM [Suspect]
     Active Substance: METHOTREXATE SODIUM
     Route: 048
  93. COSENTYX [Suspect]
     Active Substance: SECUKINUMAB
     Indication: Psoriatic arthropathy
     Route: 042
  94. FOSAMAX [Suspect]
     Active Substance: ALENDRONATE SODIUM
     Indication: Product used for unknown indication
     Route: 048
  95. FOSAMAX [Suspect]
     Active Substance: ALENDRONATE SODIUM
     Route: 048
  96. CETIRIZINE [Suspect]
     Active Substance: CETIRIZINE HYDROCHLORIDE
     Indication: Product used for unknown indication
     Route: 048
  97. CETIRIZINE [Suspect]
     Active Substance: CETIRIZINE HYDROCHLORIDE
     Indication: Rheumatoid arthritis
  98. ALENDRONATE SODIUM [Suspect]
     Active Substance: ALENDRONATE SODIUM
     Indication: Rheumatoid arthritis
     Route: 048
  99. DESOXIMETASONE [Suspect]
     Active Substance: DESOXIMETASONE
     Indication: Product used for unknown indication
     Route: 048
  100. DESOXIMETASONE [Suspect]
     Active Substance: DESOXIMETASONE
     Indication: Rheumatoid arthritis
  101. REMICADE [Suspect]
     Active Substance: INFLIXIMAB
     Indication: Rheumatoid arthritis
     Route: 042
  102. PLAQUENIL [Suspect]
     Active Substance: HYDROXYCHLOROQUINE SULFATE
     Indication: Rheumatoid arthritis
     Route: 048
  103. PLAQUENIL [Suspect]
     Active Substance: HYDROXYCHLOROQUINE SULFATE
     Route: 048
  104. CETIRIZINE HYDROCHLORIDE [Suspect]
     Active Substance: CETIRIZINE HYDROCHLORIDE
     Indication: Product used for unknown indication
     Route: 048
  105. OXYCODONE TEREPHTHALATE [Suspect]
     Active Substance: OXYCODONE TEREPHTHALATE
     Indication: Product used for unknown indication
     Route: 065
  106. CIMZIA [Suspect]
     Active Substance: CERTOLIZUMAB PEGOL
     Indication: Rheumatoid arthritis
     Route: 058
  107. CIMZIA [Suspect]
     Active Substance: CERTOLIZUMAB PEGOL
     Route: 065
  108. CIMZIA [Suspect]
     Active Substance: CERTOLIZUMAB PEGOL
     Route: 058
  109. ARAVA [Suspect]
     Active Substance: LEFLUNOMIDE
     Indication: Rheumatoid arthritis
     Route: 048
  110. NAPROXEN SODIUM [Suspect]
     Active Substance: NAPROXEN\NAPROXEN SODIUM
     Indication: Rheumatoid arthritis
     Route: 065
  111. NAPROXEN SODIUM [Suspect]
     Active Substance: NAPROXEN\NAPROXEN SODIUM
     Route: 065
  112. CETIRIZINE HYDROCHLORIDE [Suspect]
     Active Substance: CETIRIZINE HYDROCHLORIDE
     Indication: Off label use
     Route: 048
  113. CETIRIZINE HYDROCHLORIDE [Suspect]
     Active Substance: CETIRIZINE HYDROCHLORIDE
     Indication: Product used for unknown indication
  114. CETIRIZINE HYDROCHLORIDE [Suspect]
     Active Substance: CETIRIZINE HYDROCHLORIDE
     Indication: Rheumatoid arthritis
  115. DICLOFENAC [Suspect]
     Active Substance: DICLOFENAC
     Indication: Product used for unknown indication
     Route: 047
  116. LYRICA [Suspect]
     Active Substance: PREGABALIN
     Indication: Product used for unknown indication
     Route: 065
  117. LYRICA [Suspect]
     Active Substance: PREGABALIN
     Route: 065
  118. PREDNISONE [Suspect]
     Active Substance: PREDNISONE
     Indication: Rheumatoid arthritis
     Route: 048
  119. PREDNISONE [Suspect]
     Active Substance: PREDNISONE
     Route: 048
  120. XELJANZ [Suspect]
     Active Substance: TOFACITINIB CITRATE
     Indication: Rheumatoid arthritis
     Route: 048
  121. XELJANZ [Suspect]
     Active Substance: TOFACITINIB CITRATE
     Indication: Psoriatic arthropathy
     Route: 065
  122. XELJANZ [Suspect]
     Active Substance: TOFACITINIB CITRATE
     Route: 048
  123. ORENCIA [Suspect]
     Active Substance: ABATACEPT
     Indication: Rheumatoid arthritis
     Route: 065
  124. ORENCIA [Suspect]
     Active Substance: ABATACEPT
     Route: 042
  125. ORENCIA [Suspect]
     Active Substance: ABATACEPT
     Route: 042
  126. ORENCIA [Suspect]
     Active Substance: ABATACEPT
     Route: 058
  127. ORENCIA [Suspect]
     Active Substance: ABATACEPT
     Route: 058
  128. ERELZI [Suspect]
     Active Substance: ETANERCEPT-SZZS
     Indication: Rheumatoid arthritis
     Route: 058
  129. ERELZI [Suspect]
     Active Substance: ETANERCEPT-SZZS
     Route: 058
  130. ERELZI [Suspect]
     Active Substance: ETANERCEPT-SZZS
     Route: 058
  131. CELEBREX [Suspect]
     Active Substance: CELECOXIB
     Indication: Product used for unknown indication
     Route: 048
  132. CELEBREX [Suspect]
     Active Substance: CELECOXIB
     Route: 048
  133. CELEBREX [Suspect]
     Active Substance: CELECOXIB
     Route: 048
  134. SULFAMETHOXAZOLE [Suspect]
     Active Substance: SULFAMETHOXAZOLE
     Indication: Product used for unknown indication
     Route: 065
  135. INFLIXIMAB [Suspect]
     Active Substance: INFLIXIMAB
     Indication: Rheumatoid arthritis
     Route: 065
  136. INFLIXIMAB [Suspect]
     Active Substance: INFLIXIMAB
     Route: 042
  137. LEFLUNOMIDE [Suspect]
     Active Substance: LEFLUNOMIDE
     Indication: Product used for unknown indication
     Route: 048
  138. STELARA [Suspect]
     Active Substance: USTEKINUMAB
     Indication: Psoriatic arthropathy
     Route: 065
  139. PREDNISONE [Suspect]
     Active Substance: PREDNISONE
     Indication: Condition aggravated
     Route: 048
  140. PREDNISONE [Suspect]
     Active Substance: PREDNISONE
     Indication: Psoriatic arthropathy
     Route: 048
  141. PREDNISONE [Suspect]
     Active Substance: PREDNISONE
     Indication: Rheumatoid arthritis
  142. REMICADE [Suspect]
     Active Substance: INFLIXIMAB
     Indication: Rheumatoid arthritis
     Route: 042
  143. REMICADE [Suspect]
     Active Substance: INFLIXIMAB
     Route: 058
  144. CETIRIZINE HYDROCHLORIDE [Suspect]
     Active Substance: CETIRIZINE HYDROCHLORIDE
     Indication: Product used for unknown indication
     Route: 065
  145. CETIRIZINE HYDROCHLORIDE [Suspect]
     Active Substance: CETIRIZINE HYDROCHLORIDE
     Indication: Rheumatoid arthritis
     Route: 048
  146. SIMPONI [Suspect]
     Active Substance: GOLIMUMAB
     Indication: Rheumatoid arthritis
     Route: 058
  147. SIMPONI [Suspect]
     Active Substance: GOLIMUMAB
     Route: 065
  148. ALENDRONIC ACID [Suspect]
     Active Substance: ALENDRONIC ACID
     Indication: Rheumatoid arthritis
     Route: 065
  149. MELOXICAM [Concomitant]
     Active Substance: MELOXICAM
     Indication: Product used for unknown indication
     Route: 065
  150. ATASDL [Concomitant]
     Indication: Product used for unknown indication
     Route: 065
  151. SULFASALAZINE [Concomitant]
     Active Substance: SULFASALAZINE
     Indication: Product used for unknown indication
     Route: 065
  152. TYLENOL [Concomitant]
     Active Substance: ACETAMINOPHEN
     Indication: Product used for unknown indication
     Route: 065
  153. LANSOPRAZ0LE [Concomitant]
     Indication: Product used for unknown indication
     Route: 065
  154. PREDNISOL0NE [Concomitant]
     Indication: Product used for unknown indication
     Route: 065
  155. VITAMIN C [Concomitant]
     Active Substance: ASCORBIC ACID
     Indication: Product used for unknown indication
     Route: 065
  156. RISEDRONATE SODIUM [Concomitant]
     Active Substance: RISEDRONATE SODIUM
     Indication: Product used for unknown indication
     Route: 065
  157. LISINOPRIL [Concomitant]
     Active Substance: LISINOPRIL
     Indication: Product used for unknown indication
     Route: 065
  158. GLUCOSAMINE [Concomitant]
     Active Substance: GLUCOSAMINE
     Indication: Product used for unknown indication
     Route: 065
  159. ATIVAN [Concomitant]
     Active Substance: LORAZEPAM
     Indication: Product used for unknown indication
     Route: 065
  160. IBUPROFEN [Concomitant]
     Active Substance: IBUPROFEN
     Indication: Product used for unknown indication
     Route: 065
  161. PIROXICAM [Concomitant]
     Active Substance: PIROXICAM
     Indication: Product used for unknown indication
     Route: 065
  162. CODEINE [Concomitant]
     Active Substance: CODEINE
     Indication: Product used for unknown indication
     Route: 065
  163. RAMIPRIL [Concomitant]
     Active Substance: RAMIPRIL
     Indication: Product used for unknown indication
     Route: 065
  164. MAGNESIUM [Concomitant]
     Active Substance: MAGNESIUM
     Indication: Product used for unknown indication
     Route: 065
  165. DEXAMETHASONE [Concomitant]
     Active Substance: DEXAMETHASONE
     Indication: Product used for unknown indication
     Route: 065
  166. SELMON OIL [Concomitant]
     Indication: Product used for unknown indication
     Route: 065
  167. CAFFEINE [Concomitant]
     Active Substance: CAFFEINE
     Indication: Product used for unknown indication
     Route: 065
  168. QUETIAPINE [Concomitant]
     Active Substance: QUETIAPINE
     Indication: Product used for unknown indication
     Route: 065
  169. DOXYCYCLINE [Concomitant]
     Active Substance: DOXYCYCLINE\DOXYCYCLINE HYCLATE
     Indication: Product used for unknown indication
     Route: 065
  170. LEVOTHYROXINE SODIUM [Concomitant]
     Active Substance: LEVOTHYROXINE SODIUM
     Indication: Product used for unknown indication
     Route: 065
  171. PANTOPRAZOLE SODIUM [Concomitant]
     Active Substance: PANTOPRAZOLE SODIUM
     Indication: Product used for unknown indication
     Route: 065
  172. CALCIUM [Concomitant]
     Active Substance: CALCIUM
     Indication: Product used for unknown indication
     Route: 065
  173. ERGOCALCIFEROL [Concomitant]
     Active Substance: ERGOCALCIFEROL
     Indication: Product used for unknown indication
     Route: 065

REACTIONS (96)
  - Deep vein thrombosis postoperative [Fatal]
  - Lung disorder [Fatal]
  - Mobility decreased [Fatal]
  - Alopecia [Fatal]
  - Pain [Fatal]
  - Infusion related reaction [Fatal]
  - Injury [Fatal]
  - Nasopharyngitis [Fatal]
  - Musculoskeletal stiffness [Fatal]
  - Osteoarthritis [Fatal]
  - Confusional state [Fatal]
  - Psoriatic arthropathy [Fatal]
  - Discomfort [Fatal]
  - Folliculitis [Fatal]
  - Ill-defined disorder [Fatal]
  - Pruritus [Fatal]
  - Hypersensitivity [Fatal]
  - Oedema [Fatal]
  - Arthralgia [Fatal]
  - Hip arthroplasty [Fatal]
  - Systemic lupus erythematosus [Fatal]
  - Swelling [Fatal]
  - Muscle injury [Fatal]
  - Blood cholesterol increased [Fatal]
  - Lower respiratory tract infection [Fatal]
  - Liver injury [Fatal]
  - Diarrhoea [Fatal]
  - Abdominal discomfort [Fatal]
  - Fibromyalgia [Fatal]
  - Arthropathy [Fatal]
  - Sinusitis [Fatal]
  - Asthenia [Fatal]
  - Liver disorder [Fatal]
  - General physical health deterioration [Fatal]
  - Knee arthroplasty [Fatal]
  - Peripheral swelling [Fatal]
  - Vomiting [Fatal]
  - Hypertension [Fatal]
  - Infection [Fatal]
  - Hepatic enzyme increased [Fatal]
  - Sciatica [Fatal]
  - Weight increased [Fatal]
  - Urticaria [Fatal]
  - Stomatitis [Fatal]
  - Condition aggravated [Fatal]
  - Swollen joint count increased [Fatal]
  - Pyrexia [Fatal]
  - Contusion [Fatal]
  - Type 2 diabetes mellitus [Fatal]
  - Fatigue [Fatal]
  - Lower limb fracture [Fatal]
  - Anti-cyclic citrullinated peptide antibody positive [Fatal]
  - Road traffic accident [Fatal]
  - Irritable bowel syndrome [Fatal]
  - Hypoaesthesia [Fatal]
  - Dry mouth [Fatal]
  - Treatment failure [Fatal]
  - Rheumatic fever [Fatal]
  - Impaired healing [Fatal]
  - Chest pain [Fatal]
  - Pregnancy [Fatal]
  - Synovitis [Fatal]
  - Live birth [Fatal]
  - Gait inability [Fatal]
  - Nausea [Fatal]
  - Drug intolerance [Fatal]
  - Hand deformity [Fatal]
  - Sleep disorder due to general medical condition, insomnia type [Fatal]
  - Blister [Fatal]
  - Night sweats [Fatal]
  - Gastrointestinal disorder [Fatal]
  - C-reactive protein [Fatal]
  - Lip dry [Fatal]
  - Therapy non-responder [Fatal]
  - Autoimmune disorder [Fatal]
  - Malaise [Fatal]
  - Joint swelling [Fatal]
  - Duodenal ulcer perforation [Fatal]
  - Dyspnoea [Fatal]
  - Rash [Fatal]
  - Wound [Fatal]
  - Headache [Fatal]
  - Decreased appetite [Fatal]
  - Pericarditis [Fatal]
  - Pemphigus [Fatal]
  - C-reactive protein abnormal [Fatal]
  - Glossodynia [Fatal]
  - Drug hypersensitivity [Fatal]
  - Abdominal pain upper [Fatal]
  - Rheumatoid factor positive [Fatal]
  - Asthma [Fatal]
  - Anxiety [Fatal]
  - Wheezing [Fatal]
  - Rheumatoid arthritis [Fatal]
  - Helicobacter infection [Fatal]
  - Musculoskeletal pain [Fatal]
